FAERS Safety Report 7275521-7 (Version None)
Quarter: 2011Q1

REPORT INFORMATION
  Report Type: 
  Country: None (occurrence: None)
  Receive Date: 20110204
  Receipt Date: 20110127
  Transmission Date: 20110831
  Serious: Yes (Other)
  Sender: FDA-Public Use
  Company Number: BR-BRISTOL-MYERS SQUIBB COMPANY-15516966

PATIENT
  Age: 83 Year
  Sex: Male

DRUGS (8)
  1. BROMOPRIDE [Concomitant]
     Indication: GASTRIC DISORDER
  2. FRONTAL [Concomitant]
     Dosage: FRONTAL XR
  3. VASOGARD [Concomitant]
  4. PLANTAGO OVATA [Concomitant]
     Indication: GASTROINTESTINAL DISORDER
  5. DIVELOL [Concomitant]
  6. PANTOPRAZOLE [Concomitant]
     Indication: GASTRIC DISORDER
  7. APROZIDE [Suspect]
     Indication: HYPERTENSION
     Dosage: STARTED 6 OR 7 YEARS AGO 1 DF:1 TAB 300MG/TAB
  8. CLOPIDOGREL BISULFATE [Concomitant]
     Indication: COAGULOPATHY

REACTIONS (3)
  - CAROTID ARTERY OCCLUSION [None]
  - BLOOD PRESSURE DECREASED [None]
  - CONVULSION [None]
